FAERS Safety Report 18902282 (Version 1)
Quarter: 2021Q1

REPORT INFORMATION
  Report Type: Spontaneous
  Country: US (occurrence: US)
  Receive Date: 20210217
  Receipt Date: 20210217
  Transmission Date: 20210420
  Serious: No
  Sender: FDA-Public Use
  Company Number: US-009507513-2102USA005392

PATIENT
  Age: 35 Year
  Sex: Female

DRUGS (4)
  1. GANIRELIX ACETATE INJECTION [Concomitant]
     Active Substance: GANIRELIX ACETATE
     Dosage: UNK
  2. FOLLISTIM AQ [Suspect]
     Active Substance: FOLLITROPIN
     Indication: INFERTILITY FEMALE
     Dosage: STRENGTH: 900 IU/1.08ML, UD
     Route: 058
     Dates: start: 20201007
  3. OVIDREL [Concomitant]
     Active Substance: CHORIOGONADOTROPIN ALFA
     Dosage: UNK
  4. ENDOMETRIN [Concomitant]
     Active Substance: PROGESTERONE
     Dosage: UNK

REACTIONS (2)
  - Ovarian cyst [Unknown]
  - Headache [Unknown]

NARRATIVE: CASE EVENT DATE: 20201125
